FAERS Safety Report 7179781-2 (Version None)
Quarter: 2010Q4

REPORT INFORMATION
  Report Type: 
  Country: None (occurrence: None)
  Receive Date: 20101221
  Receipt Date: 20101216
  Transmission Date: 20110411
  Serious: Yes (Other)
  Sender: FDA-Public Use
  Company Number: DE-ROCHE-748824

PATIENT
  Sex: Female
  Weight: 68 kg

DRUGS (4)
  1. TRASTUZUMAB [Suspect]
     Dosage: FREQUENCY 6MG /KG } G ADJUVANT
     Route: 065
     Dates: start: 20081117, end: 20091022
  2. TRASTUZUMAB [Suspect]
     Route: 065
     Dates: start: 20101209
  3. TRASTUZUMAB [Suspect]
     Dosage: ALL 3 WEEKS
     Route: 065
  4. IBUPROFEN [Concomitant]
     Indication: PAIN

REACTIONS (1)
  - METASTASES TO BONE [None]
